FAERS Safety Report 21760641 (Version 10)
Quarter: 2023Q2

REPORT INFORMATION
  Report Type: Report from Study
  Country: ES (occurrence: None)
  Receive Date: 20221221
  Receipt Date: 20230609
  Transmission Date: 20230721
  Serious: Yes (Hospitalization)
  Sender: FDA-Public Use
  Company Number: ES-ROCHE-3245824

PATIENT
  Age: 57 Year
  Sex: Female
  Weight: 37.9 kg

DRUGS (29)
  1. INVESTIGATIONAL PRODUCT [Suspect]
     Active Substance: INVESTIGATIONAL PRODUCT
     Indication: Colorectal cancer metastatic
     Dosage: ON 13/DEC/2022 AT 10 AM TO 11 AM, RECEIVED MOST RECENT DOSE (35 MG) OF RO7122290 PRIOR TO SAE ONSET.
     Route: 042
     Dates: start: 20221122
  2. CIBISATAMAB [Suspect]
     Active Substance: CIBISATAMAB
     Indication: Colorectal cancer metastatic
     Dosage: ON 13/DEC/2022 AT 12 PM TO 02 PM, RECEIVED MOST RECENT DOSE (100 MG) OF CIBISATAMAB PRIOR TO SAE ONS
     Route: 042
     Dates: start: 20221122
  3. OBINUTUZUMAB [Suspect]
     Active Substance: OBINUTUZUMAB
     Indication: Colorectal cancer metastatic
     Dosage: TOTAL VOLUME PRIOR AE/SAE 500 ML, RECEIVED MOST RECENT AND LAST DOSE 2000 MG OF STUDY DRUG PRIOR TO
     Route: 042
     Dates: start: 20221114
  4. HUMAN RED BLOOD CELL [Concomitant]
     Active Substance: HUMAN RED BLOOD CELL
     Indication: Anaemia
     Dosage: 2 U
     Route: 042
     Dates: start: 20221221, end: 20221221
  5. METAMIZOLE [Concomitant]
     Active Substance: METAMIZOLE
     Indication: Pyrexia
     Route: 042
     Dates: start: 20221216, end: 20221221
  6. METAMIZOLE [Concomitant]
     Active Substance: METAMIZOLE
     Indication: Pain
     Route: 048
     Dates: start: 202211
  7. CEFTRIAXONE [Concomitant]
     Active Substance: CEFTRIAXONE
     Indication: Pyrexia
     Route: 065
     Dates: start: 20221216, end: 20221216
  8. PIPERACILLIN [Concomitant]
     Active Substance: PIPERACILLIN
     Indication: Pyrexia
     Route: 042
     Dates: start: 20221216, end: 20221221
  9. TAZOBACTAM [Concomitant]
     Active Substance: TAZOBACTAM
     Indication: Pyrexia
     Route: 042
     Dates: start: 20221216, end: 20221221
  10. METOCLOPRAMIDE [Concomitant]
     Active Substance: METOCLOPRAMIDE
     Indication: Vomiting
     Route: 042
     Dates: start: 20221216, end: 20221221
  11. METOCLOPRAMIDE [Concomitant]
     Active Substance: METOCLOPRAMIDE
     Dosage: 1 AMPULE
     Route: 042
     Dates: start: 20221122, end: 20221122
  12. METOCLOPRAMIDE [Concomitant]
     Active Substance: METOCLOPRAMIDE
     Dosage: 1 AMPULE
     Route: 042
     Dates: start: 20221213, end: 20221213
  13. ACETAMINOPHEN [Concomitant]
     Active Substance: ACETAMINOPHEN
     Indication: Abdominal pain
     Route: 042
     Dates: start: 20221216, end: 20221221
  14. ACETAMINOPHEN [Concomitant]
     Active Substance: ACETAMINOPHEN
     Route: 042
     Dates: start: 20221122, end: 20221122
  15. ACETAMINOPHEN [Concomitant]
     Active Substance: ACETAMINOPHEN
     Route: 042
     Dates: start: 20221213, end: 20221213
  16. BUTYLSCOPOLAMINE [Concomitant]
     Active Substance: BUTYLSCOPOLAMINE
     Indication: Abdominal pain
     Route: 042
     Dates: start: 20221216, end: 20221221
  17. FAMOTIDINE [Concomitant]
     Active Substance: FAMOTIDINE
     Route: 048
     Dates: start: 202011
  18. GLYCERIN [Concomitant]
     Active Substance: GLYCERIN
     Indication: Constipation
     Dosage: 1 SUPPOSITORY
     Route: 050
     Dates: start: 202211
  19. POLYETHYLENE GLYCOLS [Concomitant]
     Active Substance: POLYETHYLENE GLYCOLS
     Route: 048
     Dates: start: 202211
  20. TRAMADOL [Concomitant]
     Active Substance: TRAMADOL
     Indication: Pain
     Route: 048
     Dates: start: 202209
  21. VITAMIN C [Concomitant]
     Active Substance: ASCORBIC ACID
     Route: 048
     Dates: start: 202208
  22. WHEY [Concomitant]
     Active Substance: WHEY
     Dosage: 1 OTHER
     Route: 048
     Dates: start: 202211
  23. DEXAMETHASONE [Concomitant]
     Active Substance: DEXAMETHASONE
     Indication: Premedication
     Route: 042
     Dates: start: 20221122, end: 20221122
  24. DEXAMETHASONE [Concomitant]
     Active Substance: DEXAMETHASONE
     Route: 042
     Dates: start: 20221213, end: 20221213
  25. DEXAMETHASONE [Concomitant]
     Active Substance: DEXAMETHASONE
     Route: 042
     Dates: start: 20221123, end: 20221123
  26. DEXCHLORPHENIRAMINE [Concomitant]
     Active Substance: DEXCHLORPHENIRAMINE
     Dosage: 1 AMPULE
     Route: 042
     Dates: start: 20221122, end: 20221122
  27. DEXCHLORPHENIRAMINE [Concomitant]
     Active Substance: DEXCHLORPHENIRAMINE
     Dosage: 1 AMPULE
     Route: 042
     Dates: start: 20221213, end: 20221213
  28. DEXKETOPROFEN [Concomitant]
     Active Substance: DEXKETOPROFEN
     Route: 048
     Dates: start: 20221122, end: 20221122
  29. DEXKETOPROFEN [Concomitant]
     Active Substance: DEXKETOPROFEN
     Route: 048
     Dates: start: 20221213, end: 20221213

REACTIONS (1)
  - Diarrhoea [Recovered/Resolved]

NARRATIVE: CASE EVENT DATE: 20221216
